FAERS Safety Report 10794375 (Version 1)
Quarter: 2015Q1

REPORT INFORMATION
  Report Type: Spontaneous
  Country: US (occurrence: US)
  Receive Date: 20150213
  Receipt Date: 20150213
  Transmission Date: 20150721
  Serious: Yes (Other)
  Sender: FDA-Public Use
  Company Number: US-TEVA-539784USA

PATIENT
  Age: 51 Year
  Sex: Female

DRUGS (1)
  1. COPAXONE [Suspect]
     Active Substance: GLATIRAMER ACETATE
     Indication: MULTIPLE SCLEROSIS
     Dates: start: 2009, end: 2013

REACTIONS (3)
  - Cardiac disorder [Unknown]
  - Spinal fusion surgery [Unknown]
  - Injection site reaction [Unknown]

NARRATIVE: CASE EVENT DATE: 201210
